FAERS Safety Report 8904574 (Version 2)
Quarter: 2013Q1

REPORT INFORMATION
  Report Type: Spontaneous
  Country: CA (occurrence: CA)
  Receive Date: 20121113
  Receipt Date: 20130129
  Transmission Date: 20140127
  Serious: Yes (Disabling)
  Sender: FDA-Public Use
  Company Number: PHBS2001CA00558

PATIENT
  Age: 74 Year
  Sex: Female
  Weight: 60.1 kg

DRUGS (4)
  1. EXELON [Suspect]
     Route: 048
     Dates: start: 20001019
  2. EXELON [Suspect]
     Dosage: 4.5 MG, BID
     Route: 048
     Dates: start: 20001210
  3. TRAZODONE [Concomitant]
  4. RIVOTRIL [Concomitant]
     Dosage: .5 MG, BID

REACTIONS (6)
  - Cerebrovascular accident [Recovering/Resolving]
  - Hemiplegia [Recovering/Resolving]
  - Abasia [Recovering/Resolving]
  - Aphasia [Recovering/Resolving]
  - Agitation [Not Recovered/Not Resolved]
  - Hypertension [Not Recovered/Not Resolved]
